FAERS Safety Report 15785533 (Version 1)
Quarter: 2019Q1

REPORT INFORMATION
  Report Type: Spontaneous
  Country: US (occurrence: US)
  Receive Date: 20190101
  Receipt Date: 20190101
  Transmission Date: 20190417
  Serious: Yes (Other)
  Sender: FDA-Public Use
  Company Number: None

PATIENT
  Age: 25 Year
  Sex: Female
  Weight: 81 kg

DRUGS (2)
  1. TRI FEMYNOR [Suspect]
     Active Substance: ETHINYL ESTRADIOL\NORGESTIMATE
     Indication: MENSTRUATION IRREGULAR
     Route: 048
     Dates: start: 20181111, end: 20181229
  2. TRI FEMYNOR [Suspect]
     Active Substance: ETHINYL ESTRADIOL\NORGESTIMATE
     Indication: CHEMICAL CONTRACEPTION
     Route: 048
     Dates: start: 20181111, end: 20181229

REACTIONS (11)
  - Palpitations [None]
  - Mood swings [None]
  - Neck pain [None]
  - Drug ineffective [None]
  - Suicidal ideation [None]
  - Depressed mood [None]
  - Vision blurred [None]
  - Product substitution issue [None]
  - Dizziness [None]
  - Unevaluable event [None]
  - Anxiety [None]

NARRATIVE: CASE EVENT DATE: 20181231
